FAERS Safety Report 15575731 (Version 1)
Quarter: 2018Q4

REPORT INFORMATION
  Report Type: Spontaneous
  Country: FR (occurrence: FR)
  Receive Date: 20181101
  Receipt Date: 20181101
  Transmission Date: 20190205
  Serious: Yes (Hospitalization)
  Sender: FDA-Public Use
  Company Number: FR-PROVELL PHARMACEUTICALS-2058297

PATIENT
  Age: 77 Year
  Sex: Female

DRUGS (22)
  1. ESOMEPRAZOLE. [Concomitant]
     Active Substance: ESOMEPRAZOLE MAGNESIUM
  2. PHLOROGLUCINOL [Concomitant]
     Active Substance: PHLOROGLUCINOL
  3. DIFFU K [Concomitant]
     Active Substance: POTASSIUM CHLORIDE
  4. EUTHYROX [Suspect]
     Active Substance: LEVOTHYROXINE SODIUM
     Indication: HYPOTHYROIDISM
     Route: 048
  5. EUTHYROX [Suspect]
     Active Substance: LEVOTHYROXINE SODIUM
  6. PERINDOPRIL [Concomitant]
     Active Substance: PERINDOPRIL
  7. UVEDOSE [Concomitant]
     Active Substance: CHOLECALCIFEROL
  8. SMECTA [Concomitant]
     Active Substance: MONTMORILLONITE
  9. CALTRATE [Concomitant]
     Active Substance: CALCIUM CARBONATE
  10. FUROSEMIDE. [Concomitant]
     Active Substance: FUROSEMIDE
  11. RACECADOTRIL [Concomitant]
     Active Substance: RACECADOTRIL
  12. IMATINIB. [Concomitant]
     Active Substance: IMATINIB MESYLATE
  13. SITAGLIPTINE [Concomitant]
     Active Substance: SITAGLIPTIN
  14. BISOPROLOL [Concomitant]
     Active Substance: BISOPROLOL
  15. DOLIPRANE [Concomitant]
     Active Substance: ACETAMINOPHEN
  16. FUMAFER [Concomitant]
     Active Substance: FERROUS FUMARATE
  17. CELECOXIB. [Concomitant]
     Active Substance: CELECOXIB
  18. ACETYLSALICYLIC ACID [Concomitant]
     Active Substance: ASPIRIN
  19. METOCLOPRAMIDE. [Concomitant]
     Active Substance: METOCLOPRAMIDE
  20. ATORVASTATINE [Concomitant]
     Active Substance: ATORVASTATIN
  21. GLICLAZIDE [Concomitant]
     Active Substance: GLICLAZIDE
  22. MEMANTINE. [Concomitant]
     Active Substance: MEMANTINE

REACTIONS (7)
  - Vomiting [Recovered/Resolved]
  - Hyperthyroidism [Recovered/Resolved]
  - Abdominal pain [Recovered/Resolved]
  - Nausea [Recovered/Resolved]
  - Food aversion [Recovered/Resolved]
  - Weight decreased [Recovered/Resolved]
  - Diarrhoea [Recovered/Resolved]

NARRATIVE: CASE EVENT DATE: 201808
